FAERS Safety Report 18039416 (Version 3)
Quarter: 2020Q3

REPORT INFORMATION
  Report Type: Spontaneous
  Country: CN (occurrence: CN)
  Receive Date: 20200717
  Receipt Date: 20200904
  Transmission Date: 20201103
  Serious: Yes (Life-Threatening, Hospitalization, Other)
  Sender: FDA-Public Use
  Company Number: CN-PFIZER INC-2020273066

PATIENT
  Age: 72 Year
  Sex: Female

DRUGS (20)
  1. METHYLPREDNISOLONE. [Suspect]
     Active Substance: METHYLPREDNISOLONE
     Dosage: UNK
     Route: 048
     Dates: start: 20200307, end: 2020
  2. LOPINAVIR [Concomitant]
     Active Substance: LOPINAVIR
     Indication: COVID-19
     Dosage: UNK
     Dates: start: 202001, end: 20200204
  3. RITONAVIR. [Concomitant]
     Active Substance: RITONAVIR
     Indication: COVID-19
     Dosage: UNK
     Dates: start: 202001, end: 20200204
  4. METHYLPREDNISOLONE. [Suspect]
     Active Substance: METHYLPREDNISOLONE
     Dosage: 16 MG, 1X/DAY (ELEVATED)
     Route: 048
     Dates: start: 20200211, end: 202002
  5. METHYLPREDNISOLONE. [Suspect]
     Active Substance: METHYLPREDNISOLONE
     Dosage: 6 MG, 1X/DAY
     Route: 048
     Dates: start: 20200223, end: 202002
  6. TOCILIZUMAB. [Suspect]
     Active Substance: TOCILIZUMAB
     Indication: RHEUMATOID ARTHRITIS
     Dosage: 400 MG (IV DRIP)
     Route: 041
     Dates: start: 20200314
  7. OSELTAMIVIR PHOSPHATE. [Concomitant]
     Active Substance: OSELTAMIVIR PHOSPHATE
     Indication: COVID-19
     Dosage: UNK
     Dates: start: 202001, end: 20200204
  8. TOCILIZUMAB. [Suspect]
     Active Substance: TOCILIZUMAB
     Indication: COVID-19
     Dosage: 400 MG  (IV DRIP)
     Route: 041
     Dates: start: 20200307, end: 202003
  9. OSELTAMIVIR PHOSPHATE. [Concomitant]
     Active Substance: OSELTAMIVIR PHOSPHATE
     Dosage: UNK
     Dates: start: 20200223
  10. LEFLUNOMIDE. [Concomitant]
     Active Substance: LEFLUNOMIDE
     Indication: RHEUMATOID ARTHRITIS
     Dosage: 20 MG, 1X/DAY
     Route: 048
     Dates: end: 202003
  11. HYDROXYCHLOROQUINE [Concomitant]
     Active Substance: HYDROXYCHLOROQUINE
     Indication: RHEUMATOID ARTHRITIS
     Dosage: 0.2 G, 2X/DAY
     Route: 048
  12. LOPINAVIR [Concomitant]
     Active Substance: LOPINAVIR
     Indication: SEVERE ACUTE RESPIRATORY SYNDROME
     Dosage: UNK
     Dates: start: 20200211, end: 20200218
  13. LOPINAVIR [Concomitant]
     Active Substance: LOPINAVIR
     Dosage: UNK
     Dates: start: 20200223
  14. METHYLPREDNISOLONE. [Suspect]
     Active Substance: METHYLPREDNISOLONE
     Indication: SEVERE ACUTE RESPIRATORY SYNDROME
     Dosage: 4 MG, 1X/DAY (TAPERED)
     Route: 048
     Dates: start: 20200131, end: 20200210
  15. RITONAVIR. [Concomitant]
     Active Substance: RITONAVIR
     Indication: SEVERE ACUTE RESPIRATORY SYNDROME
     Dosage: UNK
     Dates: start: 20200211, end: 20200218
  16. RITONAVIR. [Concomitant]
     Active Substance: RITONAVIR
     Dosage: UNK
     Dates: start: 20200223
  17. METHYLPREDNISOLONE. [Suspect]
     Active Substance: METHYLPREDNISOLONE
     Indication: COVID-19
     Dosage: 40 MG, 1X/DAY
     Route: 048
     Dates: start: 20200126, end: 20200130
  18. METHYLPREDNISOLONE. [Suspect]
     Active Substance: METHYLPREDNISOLONE
     Dosage: UNK UNK, 1X/DAY
     Route: 048
     Dates: start: 202002, end: 20200222
  19. METHYLPREDNISOLONE. [Suspect]
     Active Substance: METHYLPREDNISOLONE
     Dosage: 12 MG, 1X/DAY
     Route: 048
     Dates: start: 202002, end: 20200302
  20. OSELTAMIVIR PHOSPHATE. [Concomitant]
     Active Substance: OSELTAMIVIR PHOSPHATE
     Indication: SEVERE ACUTE RESPIRATORY SYNDROME
     Dosage: UNK
     Dates: start: 20200211, end: 20200218

REACTIONS (8)
  - Product use in unapproved indication [Unknown]
  - Aspergillus infection [Recovering/Resolving]
  - Condition aggravated [Recovering/Resolving]
  - Cytokine storm [Recovering/Resolving]
  - Off label use [Unknown]
  - Haemophagocytic lymphohistiocytosis [Recovering/Resolving]
  - Pneumocystis jirovecii infection [Recovering/Resolving]
  - Multiple organ dysfunction syndrome [Recovering/Resolving]

NARRATIVE: CASE EVENT DATE: 202003
